FAERS Safety Report 8063669-9 (Version None)
Quarter: 2012Q1

REPORT INFORMATION
  Report Type: 
  Country: None (occurrence: None)
  Receive Date: 20120123
  Receipt Date: 20120110
  Transmission Date: 20120608
  Serious: Yes (Hospitalization)
  Sender: FDA-Public Use
  Company Number: US-JNJFOC-20110503451

PATIENT
  Age: 56 Year
  Sex: Female
  Weight: 59 kg

DRUGS (5)
  1. PARACETAMOL/DIPHENHYDRAMINE [Suspect]
     Indication: PRODUCT USED FOR UNKNOWN INDICATION
  2. VICODIN [Suspect]
     Indication: TOOTHACHE
     Route: 048
  3. QUETIAPINE [Concomitant]
  4. CITALOPRAM HYDROBROMIDE [Concomitant]
  5. TRAZODONE HCL [Concomitant]

REACTIONS (12)
  - BLOOD ALKALINE PHOSPHATASE INCREASED [None]
  - ASPARTATE AMINOTRANSFERASE INCREASED [None]
  - ALANINE AMINOTRANSFERASE INCREASED [None]
  - NAUSEA [None]
  - COAGULOPATHY [None]
  - BLOOD BILIRUBIN INCREASED [None]
  - OVERDOSE [None]
  - HEPATIC FUNCTION ABNORMAL [None]
  - BILIARY DILATATION [None]
  - PROTHROMBIN TIME PROLONGED [None]
  - VOMITING [None]
  - ABDOMINAL PAIN [None]
